FAERS Safety Report 9214619 (Version 2)
Quarter: 2013Q2

REPORT INFORMATION
  Report Type: Report from Study
  Country: AU (occurrence: AU)
  Receive Date: 20130405
  Receipt Date: 20130509
  Transmission Date: 20140414
  Serious: Yes (Death, Other)
  Sender: FDA-Public Use
  Company Number: AU-ROCHE-1210271

PATIENT
  Age: 43 Year
  Sex: Female

DRUGS (1)
  1. ZELBORAF [Suspect]
     Indication: METASTATIC MALIGNANT MELANOMA
     Route: 048
     Dates: start: 20121221, end: 20130329

REACTIONS (4)
  - Cardiac tamponade [Fatal]
  - Squamous cell carcinoma of skin [Unknown]
  - Shock [Fatal]
  - Metastatic malignant melanoma [Fatal]
